FAERS Safety Report 9910036 (Version 1)
Quarter: 2014Q1

REPORT INFORMATION
  Report Type: Report from Study
  Country: US (occurrence: US)
  Receive Date: 20140219
  Receipt Date: 20140219
  Transmission Date: 20141002
  Serious: Yes (Other)
  Sender: FDA-Public Use
  Company Number: US-ABBVIE-14P-163-1201561-00

PATIENT
  Age: 65 Year
  Sex: Female
  Weight: 86.26 kg

DRUGS (12)
  1. HUMIRA [Suspect]
     Indication: CROHN^S DISEASE
     Route: 058
     Dates: start: 201209, end: 201308
  2. HUMIRA [Suspect]
     Route: 058
     Dates: start: 201310
  3. BYSTOLIC [Concomitant]
     Indication: HYPERTENSION
  4. FOSAMAX [Concomitant]
     Indication: OSTEOPENIA
  5. ALIGN [Concomitant]
     Indication: GASTROINTESTINAL DISORDER
  6. VITAMIN D3 [Concomitant]
     Indication: SUPPLEMENTATION THERAPY
  7. VITAMIN E [Concomitant]
     Indication: SUPPLEMENTATION THERAPY
  8. COENZYME Q 10 [Concomitant]
     Indication: SUPPLEMENTATION THERAPY
  9. FLAX SEED OIL [Concomitant]
     Indication: SUPPLEMENTATION THERAPY
  10. FISH OIL [Concomitant]
     Indication: SUPPLEMENTATION THERAPY
  11. AMITRIPTYLINE [Concomitant]
     Indication: DEPRESSION
  12. OMEPRAZOLE [Concomitant]
     Indication: GASTROOESOPHAGEAL REFLUX DISEASE

REACTIONS (4)
  - Meniscus injury [Recovered/Resolved]
  - Haematochezia [Recovered/Resolved]
  - Road traffic accident [Not Recovered/Not Resolved]
  - Crohn^s disease [Recovering/Resolving]
